FAERS Safety Report 16239404 (Version 1)
Quarter: 2019Q2

REPORT INFORMATION
  Report Type: Spontaneous
  Country: US (occurrence: US)
  Receive Date: 20190322
  Receipt Date: 20190322
  Transmission Date: 20190711
  Serious: No
  Sender: FDA-Public Use
  Company Number: None

PATIENT
  Age: 56 Year

DRUGS (1)
  1. MYCOPHENOLATE++ 500MG ACCORD HEALTHCARE [Suspect]
     Active Substance: MYCOPHENOLIC ACID
     Indication: MULTIPLE SCLEROSIS
     Route: 048
     Dates: start: 201901

REACTIONS (2)
  - Depression [None]
  - Mental disorder [None]

NARRATIVE: CASE EVENT DATE: 20190228
